FAERS Safety Report 24545119 (Version 1)
Quarter: 2024Q4

REPORT INFORMATION
  Report Type: Spontaneous
  Country: CA (occurrence: CA)
  Receive Date: 20241024
  Receipt Date: 20241024
  Transmission Date: 20250115
  Serious: Yes (Hospitalization, Other)
  Sender: SANDOZ
  Company Number: CA-SANDOZ-SDZ2024CA089382

PATIENT
  Age: 56 Year
  Sex: Male
  Weight: 51 kg

DRUGS (1)
  1. CEFTRIAXONE SODIUM [Suspect]
     Active Substance: CEFTRIAXONE SODIUM
     Indication: Meningitis tuberculous
     Dosage: 2 G, Q12H
     Route: 042

REACTIONS (4)
  - Hyperventilation [Recovered/Resolved]
  - Tachypnoea [Recovered/Resolved]
  - Agitation [Recovered/Resolved]
  - Chills [Recovered/Resolved]
